FAERS Safety Report 8776576 (Version 1)
Quarter: 2012Q4

REPORT INFORMATION
  Report Type: 
  Country: BR (occurrence: BR)
  Receive Date: 20120911
  Receipt Date: 20120911
  Transmission Date: 20130627
  Serious: Yes (Life-Threatening, Other)
  Sender: FDA-Public Use
  Company Number: BR-ROCHE-1116930

PATIENT
  Sex: Female
  Weight: 70 kg

DRUGS (8)
  1. XOLAIR [Suspect]
     Indication: ASTHMA
     Dosage: 2 ampules each for 30 days
     Route: 065
     Dates: start: 201201
  2. PREDNISONE [Suspect]
     Indication: DYSPNOEA
  3. ALENIA [Suspect]
     Indication: DYSPNOEA
     Route: 065
  4. FORASEQ [Suspect]
     Indication: DYSPNOEA
  5. SALBUTAMOL [Suspect]
     Indication: DYSPNOEA
  6. GARDENAL [Concomitant]
     Dosage: 2 tablet/day
     Route: 065
  7. NIFEDIPINE [Concomitant]
  8. AMITRIPTYLINE [Concomitant]

REACTIONS (4)
  - Feeling abnormal [Unknown]
  - Dyspnoea [Recovered/Resolved]
  - Weight increased [Unknown]
  - Oedema peripheral [Not Recovered/Not Resolved]
